FAERS Safety Report 9290883 (Version 1)
Quarter: 2013Q2

REPORT INFORMATION
  Report Type: Spontaneous
  Country: US (occurrence: None)
  Receive Date: 20130514
  Receipt Date: 20130514
  Transmission Date: 20140414
  Serious: No
  Sender: FDA-Public Use
  Company Number: None

PATIENT
  Sex: 0
  Weight: 38.1 kg

DRUGS (1)
  1. AMPHETAMINE (+) DEXTROAMPHETAMINE [Suspect]
     Indication: ATTENTION DEFICIT/HYPERACTIVITY DISORDER
     Route: 048
     Dates: start: 20121102, end: 20130124

REACTIONS (3)
  - Product substitution issue [None]
  - Abnormal behaviour [None]
  - Therapeutic response unexpected with drug substitution [None]
